FAERS Safety Report 11685847 (Version 5)
Quarter: 2016Q4

REPORT INFORMATION
  Report Type: Report from Study
  Country: FR (occurrence: FR)
  Receive Date: 20151030
  Receipt Date: 20161014
  Transmission Date: 20170206
  Serious: Yes (Other)
  Sender: FDA-Public Use
  Company Number: FR-ASTELLAS-2015US038928

PATIENT
  Age: 66 Year
  Sex: Male
  Weight: 57 kg

DRUGS (6)
  1. TACROLIMUS. [Suspect]
     Active Substance: TACROLIMUS
     Dosage: 9 MG, ONCE DAILY (1 HOUR BEFORE A MEAL)
     Route: 065
     Dates: start: 20150527
  2. TACROLIMUS. [Suspect]
     Active Substance: TACROLIMUS
     Dosage: 4 MG/DAY, 1 HOUR BEFORE A MEAL..
     Route: 065
     Dates: start: 20151029
  3. TACROLIMUS. [Suspect]
     Active Substance: TACROLIMUS
     Dosage: 11 MG, ONCE DAILY (1 HOUR BEFORE A MEAL)
     Route: 065
     Dates: start: 20141204
  4. TACROLIMUS. [Suspect]
     Active Substance: TACROLIMUS
     Indication: LIVER TRANSPLANT
     Dosage: 8 MG, ONCE DAILY (1 HOUR BEFORE A MEAL)
     Route: 065
     Dates: start: 20141030
  5. TACROLIMUS. [Suspect]
     Active Substance: TACROLIMUS
     Dosage: 10 MG, ONCE DAILY (1 HOUR BEFORE A MEAL)
     Route: 065
     Dates: start: 20141113
  6. TACROLIMUS. [Suspect]
     Active Substance: TACROLIMUS
     Dosage: 6 MG, ONCE DAILY (1 HOUR BEFORE A MEAL)
     Route: 065
     Dates: start: 20150708

REACTIONS (3)
  - Transurethral prostatectomy [Recovered/Resolved]
  - Renal failure [Not Recovered/Not Resolved]
  - Inguinal hernia [Recovered/Resolved]

NARRATIVE: CASE EVENT DATE: 201411
